FAERS Safety Report 5849298-3 (Version None)
Quarter: 2008Q3

REPORT INFORMATION
  Report Type: 
  Country: None (occurrence: None)
  Receive Date: 20080731
  Receipt Date: 20080602
  Transmission Date: 20090109
  Serious: No
  Sender: FDA-Public Use
  Company Number: US200806000564

PATIENT
  Age: 58 Year
  Sex: Female

DRUGS (6)
  1. BYETTA [Suspect]
     Indication: INSULIN-REQUIRING TYPE 2 DIABETES MELLITUS
     Dosage: 10 UG, SUBCUTANEOUS
     Route: 058
  2. INSULIN (INSULIN) [Concomitant]
  3. DRUG USED IN DIABETES [Concomitant]
  4. SYNTHROID [Concomitant]
  5. DIOVAN HCT [Concomitant]
  6. LOTREL [Concomitant]

REACTIONS (1)
  - BLOOD GLUCOSE INCREASED [None]
